FAERS Safety Report 7373466-5 (Version None)
Quarter: 2011Q1

REPORT INFORMATION
  Report Type: 
  Country: None (occurrence: None)
  Receive Date: 20110325
  Receipt Date: 20110314
  Transmission Date: 20110831
  Serious: No
  Sender: FDA-Public Use
  Company Number: US-BIOGENIDEC-2010BI032266

PATIENT
  Age: 39 Year
  Sex: Female

DRUGS (1)
  1. TYSABRI [Suspect]
     Indication: MULTIPLE SCLEROSIS
     Route: 042
     Dates: start: 20061025, end: 20101101

REACTIONS (4)
  - PNEUMONIA [None]
  - NEUROPATHY PERIPHERAL [None]
  - CEREBRAL ATROPHY [None]
  - HYPOGAMMAGLOBULINAEMIA [None]
